FAERS Safety Report 7206650-1 (Version None)
Quarter: 2010Q4

REPORT INFORMATION
  Report Type: 
  Country: None (occurrence: None)
  Receive Date: 20101221
  Receipt Date: 20101206
  Transmission Date: 20110411
  Serious: Yes (Life-Threatening, Hospitalization)
  Sender: FDA-Public Use
  Company Number: 1000017737

PATIENT
  Age: 32 Year
  Sex: Female

DRUGS (1)
  1. CITALOPRAM (CITALOPRAM HYDROBROMIDE) [Suspect]
     Dosage: ORAL
     Route: 048
     Dates: start: 20100521

REACTIONS (4)
  - CARDIAC ARREST [None]
  - CONVULSION [None]
  - LONG QT SYNDROME [None]
  - VENTRICULAR FIBRILLATION [None]
